FAERS Safety Report 7512541-9 (Version None)
Quarter: 2011Q2

REPORT INFORMATION
  Report Type: 
  Country: None (occurrence: None)
  Receive Date: 20110531
  Receipt Date: 20110525
  Transmission Date: 20111010
  Serious: Yes (Other)
  Sender: FDA-Public Use
  Company Number: US-ROCHE-777585

PATIENT
  Sex: Female
  Weight: 71.7 kg

DRUGS (14)
  1. ACTEMRA [Suspect]
     Indication: RHEUMATOID ARTHRITIS
     Dosage: FORM: INFUSION
     Route: 042
     Dates: start: 20110125, end: 20110125
  2. ACTEMRA [Suspect]
     Route: 042
     Dates: start: 20110322, end: 20110322
  3. OXYCODONE HCL [Concomitant]
  4. ACTEMRA [Suspect]
     Route: 042
     Dates: start: 20110222, end: 20110222
  5. TRAZODONE HCL [Concomitant]
     Dosage: DOSE TAKEN AT HS (BEDTIME)
  6. CYCLOBENZAPRINE [Concomitant]
     Dosage: USED IF DIAZEPAM NOT WORKING
  7. FUROSEMIDE [Concomitant]
  8. SIMVASTATIN [Concomitant]
  9. ACTEMRA [Suspect]
     Route: 042
     Dates: start: 20110419, end: 20110419
  10. DIAZEPAM [Concomitant]
  11. ACTEMRA [Suspect]
     Route: 042
     Dates: start: 20110517
  12. GABAPENTIN [Concomitant]
  13. PROMETHAZINE [Concomitant]
     Indication: NAUSEA
  14. PANTOPRAZOLE [Concomitant]

REACTIONS (1)
  - BLISTER [None]
